FAERS Safety Report 8287910-2 (Version None)
Quarter: 2012Q2

REPORT INFORMATION
  Report Type: 
  Country: None (occurrence: None)
  Receive Date: 20120416
  Receipt Date: 20120405
  Transmission Date: 20120825
  Serious: Yes (Hospitalization)
  Sender: FDA-Public Use
  Company Number: JP-BRISTOL-MYERS SQUIBB COMPANY-15106743

PATIENT
  Age: 47 Year
  Sex: Female
  Weight: 51 kg

DRUGS (5)
  1. DOMPERIDONE [Concomitant]
     Dosage: TABLET LAST DOSE: 1 TAB ON 06MAY10
     Dates: start: 20081120, end: 20100506
  2. ZOLOFT [Suspect]
     Indication: MAJOR DEPRESSION
     Dosage: TABLET, 25MG LAST DOSE: 1 TAB ON 06MAY10
     Route: 048
     Dates: start: 20100112, end: 20100506
  3. ZOLPIDEM [Suspect]
     Indication: INSOMNIA
     Dosage: TABLET LAST DOSE :1 TAB ON 06MAY10
     Route: 048
     Dates: start: 20090512, end: 20100506
  4. ARIPIPRAZOLE [Suspect]
     Indication: MAJOR DEPRESSION
     Dosage: 13JAN-09MAR10(56D) 10MAR-16MAR10(7D) 3 MG/DAY 17MAR-20APR(35D) 1 DF = 1TAB
     Route: 048
     Dates: start: 20100310, end: 20100420
  5. GASCON [Concomitant]
     Dosage: TABLET, 40MG
     Dates: start: 20090616, end: 20100506

REACTIONS (3)
  - SUICIDE ATTEMPT [None]
  - DELUSION [None]
  - HALLUCINATION [None]
